FAERS Safety Report 23943589 (Version 2)
Quarter: 2024Q2

REPORT INFORMATION
  Report Type: Report from Study
  Country: US (occurrence: US)
  Receive Date: 20240606
  Receipt Date: 20240618
  Transmission Date: 20240716
  Serious: Yes (Other)
  Sender: FDA-Public Use
  Company Number: US-AMGEN-USASL2024108729

PATIENT
  Age: 64 Year
  Sex: Male
  Weight: 86.2 kg

DRUGS (2)
  1. VECTIBIX [Suspect]
     Active Substance: PANITUMUMAB
     Indication: Rectal cancer
     Dosage: 517.20 MILLIGRAM, Q2WK (14 DAY, FREQUENCY PER DAY:QD)
     Route: 042
     Dates: start: 20240208, end: 20240509
  2. VECTIBIX [Suspect]
     Active Substance: PANITUMUMAB
     Dosage: UNK, 100 MG, 5 ML (20 MG/ML) SINGLE-USE VIAL
     Route: 042
     Dates: start: 2024

REACTIONS (1)
  - Rectal cancer [Unknown]

NARRATIVE: CASE EVENT DATE: 20240101
